FAERS Safety Report 7664820-2 (Version None)
Quarter: 2011Q3

REPORT INFORMATION
  Report Type: 
  Country: None (occurrence: None)
  Receive Date: 20110806
  Receipt Date: 20110131
  Transmission Date: 20111222
  Serious: No
  Sender: FDA-Public Use
  Company Number: US-ABBOTT-11P-163-0702282-00

PATIENT
  Sex: Female
  Weight: 77.18 kg

DRUGS (5)
  1. NIASPAN [Suspect]
     Indication: BLOOD TRIGLYCERIDES INCREASED
     Dates: start: 20100701, end: 20110126
  2. EVISTA [Concomitant]
     Indication: OSTEOPOROSIS
  3. NIASPAN [Suspect]
     Dates: start: 20110127, end: 20110130
  4. VYTORIN [Concomitant]
     Indication: PRODUCT USED FOR UNKNOWN INDICATION
  5. FOSAMAX [Concomitant]
     Indication: OSTEOPOROSIS

REACTIONS (5)
  - RASH MACULAR [None]
  - DIZZINESS [None]
  - PRURITUS [None]
  - PALPITATIONS [None]
  - SYNCOPE [None]
